FAERS Safety Report 5749174-0 (Version None)
Quarter: 2008Q2

REPORT INFORMATION
  Report Type: 
  Country: None (occurrence: None)
  Receive Date: 20080527
  Receipt Date: 20080515
  Transmission Date: 20081010
  Serious: Yes (Disabling, Other)
  Sender: FDA-Public Use
  Company Number: TW-ROCHE-543969

PATIENT
  Sex: Male

DRUGS (1)
  1. ROACCUTAN [Suspect]
     Indication: ACNE CONGLOBATA
     Route: 048
     Dates: start: 20070630, end: 20071116

REACTIONS (10)
  - ABNORMAL BEHAVIOUR [None]
  - DEPRESSION [None]
  - HALLUCINATION, AUDITORY [None]
  - HALLUCINATION, VISUAL [None]
  - MEMORY IMPAIRMENT [None]
  - NARCOLEPSY [None]
  - PARANOIA [None]
  - PSYCHOMOTOR RETARDATION [None]
  - SOLILOQUY [None]
  - TREMOR [None]
